FAERS Safety Report 20261726 (Version 2)
Quarter: 2022Q1

REPORT INFORMATION
  Report Type: Spontaneous
  Country: CN (occurrence: CN)
  Receive Date: 20211231
  Receipt Date: 20220106
  Transmission Date: 20220423
  Serious: No
  Sender: FDA-Public Use
  Company Number: CN-ORGANON-O2112CHN002748

PATIENT
  Age: 85 Year
  Sex: Female
  Weight: 60 kg

DRUGS (2)
  1. REMERON [Suspect]
     Active Substance: MIRTAZAPINE
     Indication: Sedation
     Dosage: 7.5 MILLIGRAM, QD
     Route: 048
     Dates: start: 20211012, end: 20211013
  2. REMERON [Suspect]
     Active Substance: MIRTAZAPINE
     Indication: Hypnotherapy

REACTIONS (1)
  - Hunger [Not Recovered/Not Resolved]

NARRATIVE: CASE EVENT DATE: 20211013
